FAERS Safety Report 9280379 (Version 1)
Quarter: 2013Q2

REPORT INFORMATION
  Report Type: Spontaneous
  Country: US (occurrence: None)
  Receive Date: 20130507
  Receipt Date: 20130507
  Transmission Date: 20140414
  Serious: Yes (Other)
  Sender: FDA-Public Use
  Company Number: None

PATIENT
  Age: 45 Year
  Sex: Female
  Weight: 74.84 kg

DRUGS (1)
  1. CYMBALTA 60 MG ELI LILL [Suspect]
     Indication: DEPRESSION
     Dosage: 1 PILL

REACTIONS (2)
  - Hyperhidrosis [None]
  - Feeling hot [None]
